FAERS Safety Report 18775981 (Version 2)
Quarter: 2021Q2

REPORT INFORMATION
  Report Type: Spontaneous
  Country: US (occurrence: US)
  Receive Date: 20210122
  Receipt Date: 20210405
  Transmission Date: 20210717
  Serious: Yes (Life-Threatening, Hospitalization, Other)
  Sender: FDA-Public Use
  Company Number: US-BRISTOL-MYERS SQUIBB COMPANY-BMS-2021-005620

PATIENT
  Age: 76 Year
  Sex: Male
  Weight: 99.34 kg

DRUGS (5)
  1. FINASTERIDE. [Concomitant]
     Active Substance: FINASTERIDE
     Indication: PRODUCT USED FOR UNKNOWN INDICATION
     Dosage: 5 MG DAILY
     Route: 065
     Dates: start: 201101
  2. ELIQUIS [Suspect]
     Active Substance: APIXABAN
     Indication: CEREBROVASCULAR ACCIDENT PROPHYLAXIS
     Dosage: 5 MILLIGRAM, BID
     Route: 048
     Dates: start: 201301, end: 2014
  3. TOPROL XL [Concomitant]
     Active Substance: METOPROLOL SUCCINATE
     Indication: ATRIAL FIBRILLATION
     Dosage: 75 MILLIGRAM, QD
     Route: 065
     Dates: start: 201101
  4. UROXATRAL [Concomitant]
     Active Substance: ALFUZOSIN HYDROCHLORIDE
     Indication: PRODUCT USED FOR UNKNOWN INDICATION
     Dosage: 10 MILLIGRAM, QD
     Route: 065
     Dates: start: 201101
  5. ALLOPURINOL. [Concomitant]
     Active Substance: ALLOPURINOL
     Indication: GOUT
     Dosage: 300 MILLIGRAM, QD
     Route: 065
     Dates: start: 198307

REACTIONS (2)
  - Drug hypersensitivity [Unknown]
  - Subdural haematoma [Unknown]

NARRATIVE: CASE EVENT DATE: 201408
